FAERS Safety Report 5529707-X (Version None)
Quarter: 2007Q4

REPORT INFORMATION
  Report Type: 
  Country: None (occurrence: None)
  Receive Date: 20071129
  Receipt Date: 20071121
  Transmission Date: 20080405
  Serious: Yes (Other)
  Sender: FDA-Public Use
  Company Number: JP-PFIZER INC-2007098336

PATIENT
  Age: 76 Year
  Sex: Male

DRUGS (1)
  1. CABERGOLINE [Suspect]
     Route: 048

REACTIONS (2)
  - CARDIAC FAILURE [None]
  - OEDEMA [None]
